FAERS Safety Report 7041937-7 (Version None)
Quarter: 2010Q4

REPORT INFORMATION
  Report Type: 
  Country: None (occurrence: None)
  Receive Date: 20101013
  Receipt Date: 20100331
  Transmission Date: 20110411
  Serious: No
  Sender: FDA-Public Use
  Company Number: US-ASTRAZENECA-2010SE14167

PATIENT
  Age: 26163 Day
  Sex: Male
  Weight: 77.1 kg

DRUGS (1)
  1. SYMBICORT [Suspect]
     Indication: COUGH
     Dosage: 160/4.5, 2 PUFFS
     Route: 055
     Dates: start: 20100317

REACTIONS (2)
  - THROAT IRRITATION [None]
  - VOCAL CORD DISORDER [None]
